FAERS Safety Report 11585437 (Version 2)
Quarter: 2015Q4

REPORT INFORMATION
  Report Type: Spontaneous
  Country: US (occurrence: US)
  Receive Date: 20151001
  Receipt Date: 20151130
  Transmission Date: 20160304
  Serious: Yes (Death, Congenital Anomaly)
  Sender: FDA-Public Use
  Company Number: US-JNJFOC-20150922581

PATIENT
  Age: 0 Day
  Sex: Male

DRUGS (19)
  1. AMITRIPTYLINE HYDROCHLORIDE. [Suspect]
     Active Substance: AMITRIPTYLINE HYDROCHLORIDE
     Indication: PAIN
     Dosage: MOTHER^S DOSING??FREQUENCY: EVERY 4 TO 6 HOURS
     Route: 064
     Dates: start: 20140924
  2. DEPO-MEDROL [Suspect]
     Active Substance: METHYLPREDNISOLONE ACETATE
     Indication: PRODUCT USED FOR UNKNOWN INDICATION
     Dosage: MOTHER^S DOSING: IA INJECTION OF LEFT KNEE
     Route: 064
     Dates: start: 20150602, end: 20150602
  3. DEPO-MEDROL [Suspect]
     Active Substance: METHYLPREDNISOLONE ACETATE
     Indication: RHEUMATOID ARTHRITIS
     Dosage: MOTHER^S DONG: IA INJECTION OF LEFT 1ST CMC WITH 40 MG
     Route: 064
     Dates: start: 20150402, end: 20150402
  4. SIMPONI ARIA [Suspect]
     Active Substance: GOLIMUMAB
     Indication: RHEUMATOID ARTHRITIS
     Dosage: MOTHER^S DOSING
     Route: 064
  5. ACETAMINOPHEN W/HYDROCODONE [Suspect]
     Active Substance: ACETAMINOPHEN\HYDROCODONE
     Indication: PAIN
     Dosage: MOTHER^S DOSINGFREQUENCY: EVERY 4 TO 6 HOURS AS NEEDED
     Route: 064
     Dates: start: 20140924
  6. DEPO-MEDROL [Suspect]
     Active Substance: METHYLPREDNISOLONE ACETATE
     Indication: RHEUMATOID ARTHRITIS
     Dosage: IA INJECTION OF 80 MG IN LEFT KNEE
     Route: 064
     Dates: start: 20150402, end: 20150402
  7. PREDNISONE. [Suspect]
     Active Substance: PREDNISONE
     Indication: PRODUCT USED FOR UNKNOWN INDICATION
     Dosage: 1 TO 3 TABLETS AS NEEDED. MOTHER^S DOSING
     Route: 064
     Dates: start: 20140924
  8. SIMPONI ARIA [Suspect]
     Active Substance: GOLIMUMAB
     Indication: RHEUMATOID ARTHRITIS
     Route: 064
     Dates: start: 201406
  9. METHOTREXATE [Suspect]
     Active Substance: METHOTREXATE
     Indication: RHEUMATOID ARTHRITIS
     Dosage: MOTHER^S DOSING
     Route: 064
     Dates: start: 20140924
  10. LO LOESTRIN FE [Suspect]
     Active Substance: ETHINYL ESTRADIOL\NORETHINDRONE ACETATE
     Indication: PRODUCT USED FOR UNKNOWN INDICATION
     Dosage: MOTHER^S DOSING
     Route: 064
     Dates: start: 20140924
  11. FERROUS GLUCONATE [Suspect]
     Active Substance: FERROUS GLUCONATE
     Indication: PRODUCT USED FOR UNKNOWN INDICATION
     Dosage: MOTHER^S DOSING
     Route: 064
     Dates: start: 20140924
  12. LEFLUNOMIDE. [Suspect]
     Active Substance: LEFLUNOMIDE
     Indication: RHEUMATOID ARTHRITIS
     Dosage: MOTHER^S DOSING. 1/2 TABLET
     Route: 064
     Dates: start: 20140924
  13. SIMPONI ARIA [Suspect]
     Active Substance: GOLIMUMAB
     Indication: RHEUMATOID ARTHRITIS
     Dosage: MOTHER^S DOSING
     Route: 064
     Dates: start: 20141111
  14. SULINDAC. [Suspect]
     Active Substance: SULINDAC
     Indication: INFLAMMATORY PAIN
     Dosage: MOTHER^S DOSING
     Route: 064
  15. DEPO-MEDROL [Suspect]
     Active Substance: METHYLPREDNISOLONE ACETATE
     Indication: PRODUCT USED FOR UNKNOWN INDICATION
     Dosage: MOTHER^S DOSING. IA INJECTION OF LEFT KNEE AFTER ASPIRATION
     Route: 064
     Dates: start: 20140520, end: 20140520
  16. ERGOCALCIFEROL. [Suspect]
     Active Substance: ERGOCALCIFEROL
     Indication: PRODUCT USED FOR UNKNOWN INDICATION
     Dosage: MOTHER^S DOSING
     Route: 064
  17. DEPO-MEDROL [Suspect]
     Active Substance: METHYLPREDNISOLONE ACETATE
     Indication: PRODUCT USED FOR UNKNOWN INDICATION
     Dosage: MOTHER^S DOSING: INJECTED INTO LEFT WRIST JOINT
     Route: 064
     Dates: start: 20150107, end: 20150107
  18. SIMPONI ARIA [Suspect]
     Active Substance: GOLIMUMAB
     Indication: RHEUMATOID ARTHRITIS
     Dosage: MOTHER^S DOSING
     Route: 064
  19. AMITRIPTYLINE HYDROCHLORIDE. [Suspect]
     Active Substance: AMITRIPTYLINE HYDROCHLORIDE
     Indication: TENSION HEADACHE
     Dosage: MOTHER^S DOSING??FREQUENCY: EVERY 4 TO 6 HOURS
     Route: 064
     Dates: start: 20140924

REACTIONS (2)
  - Foetal exposure during pregnancy [Recovered/Resolved]
  - Heart disease congenital [Fatal]

NARRATIVE: CASE EVENT DATE: 20150706
